FAERS Safety Report 5765599-1 (Version None)
Quarter: 2008Q2

REPORT INFORMATION
  Report Type: 
  Country: None (occurrence: None)
  Receive Date: 20080605
  Receipt Date: 20080527
  Transmission Date: 20081010
  Serious: Yes (Hospitalization)
  Sender: FDA-Public Use
  Company Number: E2090-00062-SPO-JP

PATIENT
  Age: 33 Year
  Sex: Female

DRUGS (5)
  1. ZONISAMIDE [Suspect]
     Indication: CONVULSION
     Dosage: 200 MG, 2 IN 1 D, ORAL
     Route: 048
     Dates: start: 20060519, end: 20060612
  2. PHENYTOIN [Suspect]
     Indication: CONVULSION
     Dosage: 250 MG, INTRAVENOUS
     Route: 042
     Dates: start: 20060516, end: 20060518
  3. PHENOBARBITAL TAB [Concomitant]
  4. GASTER (FAMOTIDINE) [Concomitant]
  5. FERROMIA (FERROUS CITRATE) [Concomitant]

REACTIONS (7)
  - DRUG RASH WITH EOSINOPHILIA AND SYSTEMIC SYMPTOMS [None]
  - FACE OEDEMA [None]
  - GENERALISED ERYTHEMA [None]
  - LIVER FUNCTION TEST ABNORMAL [None]
  - LYMPHADENOPATHY [None]
  - PYREXIA [None]
  - WHITE BLOOD CELL COUNT DECREASED [None]
